FAERS Safety Report 7701668-4 (Version None)
Quarter: 2011Q3

REPORT INFORMATION
  Report Type: 
  Country: None (occurrence: None)
  Receive Date: 20110822
  Receipt Date: 20110815
  Transmission Date: 20111222
  Serious: Yes (Hospitalization, Other)
  Sender: FDA-Public Use
  Company Number: US-BAYER-201041807NA

PATIENT
  Age: 34 Year
  Sex: Female
  Weight: 57.596 kg

DRUGS (11)
  1. TRASYLOL [Suspect]
     Indication: TRICUSPID VALVE REPLACEMENT
     Dosage: 200 ML, LOADING DOSE
     Route: 042
     Dates: start: 20050113, end: 20050113
  2. ERYTHROMYCIN [Concomitant]
  3. SOLU-MEDROL [Concomitant]
     Dosage: 125 MG EVERY 6 HOURS
     Route: 042
  4. HEPARIN [Concomitant]
  5. ZOSYN [Concomitant]
     Dosage: 3.375 G, UNK
     Route: 042
  6. METHAMPHETAMINE HYDROCHLORIDE [Concomitant]
     Route: 042
  7. RED BLOOD CELLS [Concomitant]
     Dosage: 1 U, UNK
     Route: 042
     Dates: start: 20050113
  8. VANCOMYCIN [Concomitant]
     Dosage: 1 G, UNK
     Route: 042
  9. PLATELETS [Concomitant]
     Dosage: 8 U, UNK
     Route: 042
     Dates: start: 20050113
  10. TRASYLOL [Suspect]
     Indication: CARDIAC PACEMAKER INSERTION
  11. CONTRAST MEDIA [Concomitant]
     Indication: COMPUTERISED TOMOGRAM
     Dosage: UNK
     Dates: start: 20050107

REACTIONS (10)
  - RENAL INJURY [None]
  - RENAL IMPAIRMENT [None]
  - STRESS [None]
  - UNEVALUABLE EVENT [None]
  - INJURY [None]
  - EMOTIONAL DISTRESS [None]
  - FEAR [None]
  - PAIN [None]
  - RENAL FAILURE [None]
  - ANXIETY [None]
